FAERS Safety Report 13387124 (Version 1)
Quarter: 2017Q1

REPORT INFORMATION
  Report Type: Report from Study
  Country: US (occurrence: US)
  Receive Date: 20170330
  Receipt Date: 20170330
  Transmission Date: 20170429
  Serious: Yes (Other)
  Sender: FDA-Public Use
  Company Number: US-BRISTOL-MYERS SQUIBB COMPANY-BMS-2017-025328

PATIENT
  Sex: Female
  Weight: 123.3 kg

DRUGS (1)
  1. ABATACEPT [Suspect]
     Active Substance: ABATACEPT
     Indication: RHEUMATOID ARTHRITIS
     Route: 042

REACTIONS (6)
  - Fall [Unknown]
  - Pain [Unknown]
  - Memory impairment [Unknown]
  - Knee arthroplasty [Unknown]
  - Shoulder arthroplasty [Unknown]
  - Hip fracture [Unknown]
